FAERS Safety Report 10922819 (Version 1)
Quarter: 2015Q1

REPORT INFORMATION
  Report Type: Spontaneous
  Country: US (occurrence: US)
  Receive Date: 20150317
  Receipt Date: 20150317
  Transmission Date: 20150721
  Serious: Yes (Other)
  Sender: FDA-Public Use
  Company Number: US-ASTRAZENECA-2015SE22596

PATIENT
  Sex: Female

DRUGS (8)
  1. AROMASIN [Concomitant]
     Active Substance: EXEMESTANE
     Dosage: DAILY
     Route: 048
  2. ARIMIDEX [Suspect]
     Active Substance: ANASTROZOLE
     Indication: BREAST CANCER
     Route: 048
     Dates: start: 200808, end: 200905
  3. TAMOXIFEN [Concomitant]
     Active Substance: TAMOXIFEN
  4. DIOVAN [Concomitant]
     Active Substance: VALSARTAN
  5. METOPROLOL UNSPECIFIED [Suspect]
     Active Substance: METOPROLOL
     Route: 048
  6. HYDROCHLOROTHIAZIDE. [Concomitant]
     Active Substance: HYDROCHLOROTHIAZIDE
  7. PRAVASTATIN [Concomitant]
     Active Substance: PRAVASTATIN\PRAVASTATIN SODIUM
  8. ASA [Concomitant]
     Active Substance: ASPIRIN

REACTIONS (2)
  - Invasive ductal breast carcinoma [Unknown]
  - Arthralgia [Unknown]
